FAERS Safety Report 12054579 (Version 1)
Quarter: 2016Q1

REPORT INFORMATION
  Report Type: Report from Study
  Country: US (occurrence: US)
  Receive Date: 20160209
  Receipt Date: 20160209
  Transmission Date: 20160526
  Serious: No
  Sender: FDA-Public Use
  Company Number: US-ABBVIE-15P-163-1462902-00

PATIENT
  Age: 32 Year
  Sex: Female

DRUGS (3)
  1. HUMIRA [Suspect]
     Active Substance: ADALIMUMAB
     Route: 065
  2. HUMIRA [Suspect]
     Active Substance: ADALIMUMAB
     Dosage: ONE WEEK LATER
     Route: 065
     Dates: start: 201508, end: 201508
  3. HUMIRA [Suspect]
     Active Substance: ADALIMUMAB
     Indication: PSORIASIS
     Dosage: 1ST DOSE
     Route: 065
     Dates: start: 20150819, end: 20150819

REACTIONS (1)
  - Gingival pain [Unknown]

NARRATIVE: CASE EVENT DATE: 20150819
